FAERS Safety Report 15720978 (Version 1)
Quarter: 2018Q4

REPORT INFORMATION
  Report Type: Spontaneous
  Country: NO (occurrence: NO)
  Receive Date: 20181214
  Receipt Date: 20181214
  Transmission Date: 20190205
  Serious: Yes (Death)
  Sender: FDA-Public Use
  Company Number: NO-BIOVERATIV-2018BV000352

PATIENT
  Age: 3 Year
  Sex: Male

DRUGS (1)
  1. ALPROLIX [Suspect]
     Active Substance: EFTRENONACOG ALFA
     Indication: IMMUNE TOLERANCE INDUCTION
     Route: 065

REACTIONS (1)
  - Aspiration [Fatal]
